FAERS Safety Report 8462246-5 (Version None)
Quarter: 2012Q2

REPORT INFORMATION
  Report Type: 
  Country: None (occurrence: None)
  Receive Date: 20120625
  Receipt Date: 20120622
  Transmission Date: 20120825
  Serious: Yes (Other)
  Sender: FDA-Public Use
  Company Number: PHHO2012IT009356

PATIENT
  Sex: Female

DRUGS (6)
  1. TRIPTORELIN [Concomitant]
  2. CALCIUM [Concomitant]
  3. LETROZOLE [Suspect]
     Indication: BREAST CANCER
  4. ZOLEDRONOC ACID [Suspect]
     Indication: BREAST CANCER
  5. TAMOXIFEN CITRATE [Concomitant]
  6. VITAMIN D [Concomitant]

REACTIONS (1)
  - MYOCARDIAL INFARCTION [None]
